FAERS Safety Report 9120068 (Version 2)
Quarter: 2013Q1

REPORT INFORMATION
  Report Type: Spontaneous
  Country: US (occurrence: US)
  Receive Date: 20130226
  Receipt Date: 20130228
  Transmission Date: 20140127
  Serious: Yes (Hospitalization, Other)
  Sender: FDA-Public Use
  Company Number: US-ELI_LILLY_AND_COMPANY-US201102006056

PATIENT
  Age: 76 Year
  Sex: Female

DRUGS (7)
  1. FORTEO [Suspect]
     Indication: OSTEOPOROSIS
     Dosage: 20 UG, DAILY (1/D)
     Route: 065
     Dates: start: 20110207
  2. FORTEO [Suspect]
     Dosage: 20 UG, DAILY (1/D)
     Route: 065
     Dates: start: 20110207
  3. CARDIZEM LA [Concomitant]
     Dosage: 240 MG, QD
  4. DIOVAN [Concomitant]
     Indication: HYPERTENSION
     Dosage: UNK
  5. VITAMIN D3 [Concomitant]
     Dosage: 2000 MG, QD
  6. VANCOCIN [Concomitant]
     Dosage: 250 MG, QID
  7. HYDROCHLOROTHIAZIDE [Concomitant]
     Indication: HYPERTENSION

REACTIONS (8)
  - Spinal compression fracture [Unknown]
  - Clostridium difficile infection [Recovered/Resolved]
  - Blood calcium increased [Unknown]
  - Muscle spasms [Unknown]
  - Nausea [Unknown]
  - Infection [Unknown]
  - Toxicity to various agents [Unknown]
  - Blood pressure decreased [Unknown]
